FAERS Safety Report 15591419 (Version 1)
Quarter: 2018Q4

REPORT INFORMATION
  Report Type: Spontaneous
  Country: US (occurrence: US)
  Receive Date: 20181106
  Receipt Date: 20181106
  Transmission Date: 20190205
  Serious: No
  Sender: FDA-Public Use
  Company Number: US-PFIZER INC-2018441962

PATIENT
  Age: 90 Year
  Sex: Female
  Weight: 50.8 kg

DRUGS (8)
  1. PREDNISONE. [Concomitant]
     Active Substance: PREDNISONE
     Indication: INTERVERTEBRAL DISC PROTRUSION
     Dosage: 5 MG, 1X/DAY
     Route: 048
     Dates: start: 2018
  2. PANTOPRAZOLE SODIUM. [Concomitant]
     Active Substance: PANTOPRAZOLE SODIUM
     Indication: GASTRIC DISORDER
     Dosage: 40 MG, 1X/DAY
     Route: 048
     Dates: start: 2018
  3. IBRANCE [Suspect]
     Active Substance: PALBOCICLIB
     Indication: BREAST CANCER STAGE IV
     Dosage: 100 MG, CYCLIC (1 TABLET ONCE DAILY FOR 21 DAYS AND THEN ONE WEEK OFF)
     Route: 048
     Dates: start: 2018
  4. FULVESTRANT. [Concomitant]
     Active Substance: FULVESTRANT
     Indication: AROMATASE INHIBITION THERAPY
     Dosage: 25 MG, MONTHLY
     Dates: start: 2018
  5. FULVESTRANT. [Concomitant]
     Active Substance: FULVESTRANT
     Indication: CANCER HORMONAL THERAPY
  6. CHLORTHALIDONE. [Concomitant]
     Active Substance: CHLORTHALIDONE
     Dosage: 1/2 TABLET, 1X/DAY
     Route: 048
  7. PREDNISONE. [Concomitant]
     Active Substance: PREDNISONE
     Indication: PAIN
  8. AMITRIPTYLINE HCL [Concomitant]
     Active Substance: AMITRIPTYLINE
     Indication: DEPRESSION
     Dosage: 35 MG, 1X/DAY
     Route: 048

REACTIONS (2)
  - Rash erythematous [Recovering/Resolving]
  - Incorrect dose administered [Unknown]

NARRATIVE: CASE EVENT DATE: 201810
